FAERS Safety Report 14831851 (Version 3)
Quarter: 2018Q2

REPORT INFORMATION
  Report Type: Report from Study
  Country: GB (occurrence: GB)
  Receive Date: 20180501
  Receipt Date: 20180613
  Transmission Date: 20180711
  Serious: Yes (Hospitalization, Disabling)
  Sender: FDA-Public Use
  Company Number: GB-BAYER-2018-034191

PATIENT
  Age: 17 Year
  Sex: Male
  Weight: 60.6 kg

DRUGS (15)
  1. CYCLIZINE [Concomitant]
     Active Substance: CYCLIZINE
     Indication: ANTIEMETIC SUPPORTIVE CARE
     Dosage: 150 MG PRN
     Route: 048
     Dates: start: 20180212
  2. CHLORPHENAMINE [Concomitant]
     Active Substance: CHLORPHENIRAMINE MALEATE
     Dosage: 10 MG, PRN
     Route: 042
     Dates: start: 20180212
  3. CHLORPHENAMINE [Concomitant]
     Active Substance: CHLORPHENIRAMINE MALEATE
     Dosage: 4 MG, PRN
     Route: 048
     Dates: start: 20180212
  4. REGORAFENIB. [Suspect]
     Active Substance: REGORAFENIB
     Indication: EWING^S SARCOMA RECURRENT
     Dosage: 100 MG, QD
     Route: 048
     Dates: start: 20180413
  5. ADDITIONAL STUDY MEDICATION [Suspect]
     Active Substance: UNSPECIFIED INGREDIENT
     Indication: EWING^S SARCOMA RECURRENT
     Dosage: 82 MG, QD
     Route: 042
     Dates: start: 20180212, end: 20180215
  6. ONDANSETRON [Concomitant]
     Active Substance: ONDANSETRON
     Indication: ANTIEMETIC SUPPORTIVE CARE
     Dosage: 24 MG, PRN
     Route: 048
     Dates: start: 20180212
  7. HYDROCORTISONE. [Concomitant]
     Active Substance: HYDROCORTISONE
     Dosage: DAILY DOSE 200 MG
     Route: 042
     Dates: start: 20180212, end: 20180215
  8. COTRIMOXAZOLE [Concomitant]
     Active Substance: SULFAMETHOXAZOLE\TRIMETHOPRIM
     Indication: PROPHYLAXIS
     Dosage: 960 MG, BIW
     Dates: start: 20180210
  9. REGORAFENIB. [Suspect]
     Active Substance: REGORAFENIB
     Indication: EWING^S SARCOMA RECURRENT
     Dosage: 120 MG, QD
     Route: 048
     Dates: start: 20180212, end: 20180214
  10. REGORAFENIB. [Suspect]
     Active Substance: REGORAFENIB
     Indication: EWING^S SARCOMA RECURRENT
     Dosage: 100 MG, QD
     Dates: start: 20180312, end: 20180325
  11. ADDITIONAL STUDY MEDICATION [Suspect]
     Active Substance: UNSPECIFIED INGREDIENT
     Indication: EWING^S SARCOMA RECURRENT
     Dosage: 2 MG, ONCE
     Route: 042
     Dates: start: 20180212, end: 20180212
  12. CYCLIZINE [Concomitant]
     Active Substance: CYCLIZINE
     Indication: ANTIEMETIC SUPPORTIVE CARE
     Dosage: DAILY DOSE 100 MG
     Route: 048
     Dates: start: 20180212
  13. CEFIXIME. [Concomitant]
     Active Substance: CEFIXIME
     Indication: PROPHYLAXIS AGAINST DIARRHOEA
     Dosage: DAILY DOSE 400 MG
     Route: 048
     Dates: start: 20180210, end: 20180218
  14. ONDANSETRON [Concomitant]
     Active Substance: ONDANSETRON
     Indication: ANTIEMETIC SUPPORTIVE CARE
     Dosage: DAILY DOSE 16 MG
     Route: 048
     Dates: start: 20180212
  15. PIRITON [Concomitant]
     Active Substance: CHLORPHENIRAMINE MALEATE
     Dosage: DAILY DOSE 10 MG
     Route: 042
     Dates: start: 20180212, end: 20180215

REACTIONS (7)
  - Hepatic pain [Recovered/Resolved]
  - Pyrexia [Recovered/Resolved]
  - Febrile neutropenia [Recovered/Resolved]
  - Headache [Recovered/Resolved]
  - Pyrexia [Recovered/Resolved]
  - Peripheral sensory neuropathy [Recovered/Resolved]
  - Drug-induced liver injury [Recovered/Resolved]

NARRATIVE: CASE EVENT DATE: 20180215
